FAERS Safety Report 8771419 (Version 1)
Quarter: 2012Q4

REPORT INFORMATION
  Report Type: 
  Country: BR (occurrence: BR)
  Receive Date: 20120911
  Receipt Date: 20120911
  Transmission Date: 20130627
  Serious: Yes (Other)
  Sender: FDA-Public Use
  Company Number: BR-SANOFI-AVENTIS-2012SA062309

PATIENT
  Sex: Female

DRUGS (2)
  1. CLEXANE [Suspect]
     Indication: DRUG USE FOR UNKNOWN INDICATION
     Route: 058
     Dates: start: 201208
  2. CLEXANE [Suspect]
     Indication: DRUG USE FOR UNKNOWN INDICATION
     Route: 058
     Dates: start: 201205

REACTIONS (5)
  - Ischaemia [Unknown]
  - Exposure during pregnancy [Unknown]
  - Headache [Unknown]
  - Pain in extremity [Unknown]
  - Erythema [Unknown]
